FAERS Safety Report 7712082-X (Version None)
Quarter: 2011Q3

REPORT INFORMATION
  Report Type: 
  Country: None (occurrence: None)
  Receive Date: 20110826
  Receipt Date: 20110815
  Transmission Date: 20111222
  Serious: Yes (Hospitalization)
  Sender: FDA-Public Use
  Company Number: US-SANOFI-AVENTIS-2011SA047117

PATIENT
  Age: 66 Year
  Sex: Male
  Weight: 84.5 kg

DRUGS (3)
  1. OXALIPLATIN [Suspect]
     Route: 065
     Dates: start: 20110428, end: 20110616
  2. AVASTIN [Suspect]
     Route: 065
     Dates: start: 20110428, end: 20110616
  3. CAPECITABINE [Suspect]
     Route: 065
     Dates: start: 20110428, end: 20110616

REACTIONS (4)
  - HYPOXIA [None]
  - MALNUTRITION [None]
  - DEHYDRATION [None]
  - PNEUMONIA [None]
